FAERS Safety Report 10066312 (Version 4)
Quarter: 2014Q3

REPORT INFORMATION
  Report Type: Spontaneous
  Country: US (occurrence: US)
  Receive Date: 20140408
  Receipt Date: 20140709
  Transmission Date: 20150326
  Serious: Yes (Death, Life-Threatening, Hospitalization, Other)
  Sender: FDA-Public Use
  Company Number: US-009507513-1404USA004164

PATIENT
  Sex: Female
  Weight: 68.27 kg

DRUGS (3)
  1. JANUMET [Suspect]
     Active Substance: METFORMIN HYDROCHLORIDE\SITAGLIPTIN PHOSPHATE
     Dosage: 50 MG/1000 MG, BID
     Route: 048
     Dates: start: 20111108, end: 20120503
  2. BYETTA [Suspect]
     Active Substance: EXENATIDE
     Indication: TYPE 2 DIABETES MELLITUS
     Dosage: 10 MICROGRAM, QD
     Dates: start: 20070811, end: 20070910
  3. JANUMET [Suspect]
     Active Substance: METFORMIN HYDROCHLORIDE\SITAGLIPTIN PHOSPHATE
     Indication: TYPE 2 DIABETES MELLITUS
     Dosage: 50 MG/1000 MG, BID
     Route: 048
     Dates: start: 20080814, end: 20110109

REACTIONS (17)
  - Deep vein thrombosis [Unknown]
  - Pulmonary embolism [Unknown]
  - Gastrooesophageal reflux disease [Unknown]
  - Pancreatic carcinoma metastatic [Fatal]
  - Hyperglycaemia [Unknown]
  - Hypertension [Unknown]
  - Dizziness [Unknown]
  - Back pain [Unknown]
  - Constipation [Unknown]
  - Upper respiratory tract congestion [Unknown]
  - Lung infiltration [Unknown]
  - Tendon sheath incision [Unknown]
  - Anaemia [Unknown]
  - Dyspnoea [Unknown]
  - Metastases to liver [Fatal]
  - Diabetic neuropathy [Unknown]
  - Leukocytosis [Unknown]

NARRATIVE: CASE EVENT DATE: 201203
